FAERS Safety Report 7655377-0 (Version None)
Quarter: 2011Q3

REPORT INFORMATION
  Report Type: 
  Country: None (occurrence: None)
  Receive Date: 20110729
  Receipt Date: 20110722
  Transmission Date: 20111222
  Serious: Yes (Other)
  Sender: FDA-Public Use
  Company Number: TRP_07853_2011

PATIENT
  Sex: Female

DRUGS (2)
  1. INTERFERON [Suspect]
     Indication: HEPATITIS C
     Dosage: (DF)
  2. RIBAVIRIN [Suspect]
     Indication: HEPATITIS C
     Dosage: (DF)
     Dates: end: 20110601

REACTIONS (3)
  - PREGNANCY [None]
  - DRUG DEPENDENCE [None]
  - MATERNAL EXPOSURE DURING PREGNANCY [None]
